FAERS Safety Report 20767245 (Version 1)
Quarter: 2022Q2

REPORT INFORMATION
  Report Type: Spontaneous
  Country: UY (occurrence: UY)
  Receive Date: 20220429
  Receipt Date: 20220429
  Transmission Date: 20220721
  Serious: Yes (Hospitalization, Other)
  Sender: FDA-Public Use
  Company Number: UY-LUPIN PHARMACEUTICALS INC.-2022-06248

PATIENT
  Age: 66 Year
  Sex: Male

DRUGS (4)
  1. POTASSIUM [Suspect]
     Active Substance: POTASSIUM
     Indication: Product used for unknown indication
     Dosage: 2 GRAM (DILUTE IN SODIUM-CHLORIDE AND ERRONEOUSLY ADMINISTER THROUGH EPIDURAL CATHETER AT RATE OF 12
     Route: 008
  2. FENTANYL [Suspect]
     Active Substance: FENTANYL
     Indication: Postoperative analgesia
     Dosage: 5 MICROGRAM PER MILLILITER
     Route: 065
  3. BUPIVACAINE [Suspect]
     Active Substance: BUPIVACAINE
     Indication: Postoperative analgesia
     Dosage: 0.125 % (ERRONEOUSLY ADMINISTER THROUGH CENTRAL VENOUS LINE AT A RATE OF 6ML/HOUR)
     Route: 065
  4. SALINE [Suspect]
     Active Substance: SODIUM CHLORIDE
     Indication: Medication dilution
     Dosage: UNK (WITH IN POTASSIUM-CHLORIDE AND ERRONEOUSLY ADMINISTER THROUGH EPIDURAL CATHETER AT RATE OF 125M
     Route: 008

REACTIONS (4)
  - Paresis [Recovered/Resolved]
  - Paralysis [Recovered/Resolved]
  - Nerve block [Recovered/Resolved]
  - Medication error [Unknown]
